FAERS Safety Report 12245598 (Version 1)
Quarter: 2016Q2

REPORT INFORMATION
  Report Type: Spontaneous
  Country: US (occurrence: US)
  Receive Date: 20160407
  Receipt Date: 20160407
  Transmission Date: 20160815
  Serious: No
  Sender: FDA-Public Use
  Company Number: US-ACTAVIS-2016-00937

PATIENT
  Sex: Female

DRUGS (1)
  1. HYDROCORTISONE (AMALLC) [Suspect]
     Active Substance: HYDROCORTISONE
     Indication: RASH
     Dosage: UNK, UNKNOWN
     Route: 061

REACTIONS (3)
  - Proctalgia [Not Recovered/Not Resolved]
  - Headache [Not Recovered/Not Resolved]
  - Accidental exposure to product [Not Recovered/Not Resolved]
